FAERS Safety Report 5314627-6 (Version None)
Quarter: 2007Q2

REPORT INFORMATION
  Report Type: 
  Country: None (occurrence: None)
  Receive Date: 20070502
  Receipt Date: 20070425
  Transmission Date: 20071010
  Serious: Yes (Other)
  Sender: FDA-Public Use
  Company Number: US-GENENTECH-237904

PATIENT
  Sex: Female

DRUGS (4)
  1. LUCENTIS [Suspect]
     Indication: MACULAR DEGENERATION
     Dosage: UNK, 1/MONTH
     Route: 031
  2. XOPENEX [Concomitant]
     Indication: ASTHMA
  3. DIOVAN [Concomitant]
     Indication: HYPERTENSION
  4. QVAR 40 [Concomitant]
     Indication: ASTHMA

REACTIONS (1)
  - ASTHMA [None]
